FAERS Safety Report 7915364-1 (Version None)
Quarter: 2011Q4

REPORT INFORMATION
  Report Type: 
  Country: None (occurrence: None)
  Receive Date: 20111115
  Receipt Date: 20111108
  Transmission Date: 20120403
  Serious: Yes (Hospitalization)
  Sender: FDA-Public Use
  Company Number: PHEH2011US009140

PATIENT
  Sex: Female

DRUGS (6)
  1. ALBUTEROL [Concomitant]
  2. PULMOZYME [Concomitant]
  3. FOLIC ACID [Concomitant]
     Indication: HEREDITARY SPHEROCYTOSIS
  4. TOBI [Suspect]
     Indication: CYSTIC FIBROSIS
     Dosage: 300 MG, BID
  5. HYPERSAL [Concomitant]
  6. CAYSTON [Concomitant]

REACTIONS (2)
  - COUGH [None]
  - BLOOD DISORDER [None]
